FAERS Safety Report 25371530 (Version 1)
Quarter: 2025Q2

REPORT INFORMATION
  Report Type: Spontaneous
  Country: IT (occurrence: IT)
  Receive Date: 20250529
  Receipt Date: 20250529
  Transmission Date: 20250716
  Serious: Yes (Hospitalization)
  Sender: AMGEN
  Company Number: IT-AMGEN-ITASP2025100208

PATIENT
  Age: 6 Year
  Sex: Female

DRUGS (7)
  1. ROMIPLOSTIM [Suspect]
     Active Substance: ROMIPLOSTIM
     Indication: Immune thrombocytopenia
     Route: 058
     Dates: start: 202408
  2. ROMIPLOSTIM [Suspect]
     Active Substance: ROMIPLOSTIM
     Route: 058
  3. ROMIPLOSTIM [Suspect]
     Active Substance: ROMIPLOSTIM
     Route: 058
     Dates: end: 202411
  4. Immunoglobulin [Concomitant]
  5. PREDNISONE [Concomitant]
     Active Substance: PREDNISONE
  6. ELTROMBOPAG [Concomitant]
     Active Substance: ELTROMBOPAG
     Indication: Immune thrombocytopenia
     Dosage: 75 MILLIGRAM, QD
     Dates: start: 2024
  7. MYCOPHENOLATE MOFETIL [Concomitant]
     Active Substance: MYCOPHENOLATE MOFETIL
     Indication: Immune thrombocytopenia

REACTIONS (4)
  - Mucocutaneous haemorrhage [Unknown]
  - Thrombocytopenia [Unknown]
  - Quality of life decreased [Unknown]
  - Therapy non-responder [Unknown]

NARRATIVE: CASE EVENT DATE: 20240101
